FAERS Safety Report 16678660 (Version 2)
Quarter: 2019Q3

REPORT INFORMATION
  Report Type: Spontaneous
  Country: DE (occurrence: DE)
  Receive Date: 20190807
  Receipt Date: 20190826
  Transmission Date: 20191004
  Serious: Yes (Other)
  Sender: FDA-Public Use
  Company Number: DE-PFIZER INC-2019332065

PATIENT
  Sex: Female
  Weight: 66 kg

DRUGS (3)
  1. BISOPROLOL RATIOPHARM [Suspect]
     Active Substance: BISOPROLOL
     Dosage: 1 DF, UNK
     Route: 065
  2. ATORVASTATIN CALCIUM. [Suspect]
     Active Substance: ATORVASTATIN CALCIUM
     Dosage: UNK
     Route: 065
  3. CANDESARTAN 1A PHARMA [Suspect]
     Active Substance: CANDESARTAN CILEXETIL
     Dosage: 2 DF, 1X/DAY
     Route: 065

REACTIONS (3)
  - Eye pruritus [Unknown]
  - Diarrhoea [Unknown]
  - Discomfort [Unknown]
